FAERS Safety Report 8210016-5 (Version None)
Quarter: 2012Q1

REPORT INFORMATION
  Report Type: 
  Country: None (occurrence: None)
  Receive Date: 20120314
  Receipt Date: 20120119
  Transmission Date: 20120608
  Serious: No
  Sender: FDA-Public Use
  Company Number: US-ASTRAZENECA-2012SE04002

PATIENT
  Age: 59 Year
  Sex: Female
  Weight: 65.3 kg

DRUGS (2)
  1. TOPROL-XL [Suspect]
     Indication: HEART RATE INCREASED
     Route: 048
     Dates: start: 20111101
  2. SIMVASTATIN [Suspect]
     Indication: BLOOD CHOLESTEROL ABNORMAL
     Route: 065

REACTIONS (4)
  - BLOOD PRESSURE FLUCTUATION [None]
  - BLOOD THYROID STIMULATING HORMONE INCREASED [None]
  - ANXIETY [None]
  - BLOOD GLUCOSE INCREASED [None]
